FAERS Safety Report 7407033-1 (Version None)
Quarter: 2011Q2

REPORT INFORMATION
  Report Type: 
  Country: None (occurrence: None)
  Receive Date: 20110411
  Receipt Date: 20110315
  Transmission Date: 20111010
  Serious: No
  Sender: FDA-Public Use
  Company Number: US-BAYER-2011-024260

PATIENT
  Sex: Female
  Weight: 63 kg

DRUGS (4)
  1. ALEVE (CAPLET) [Suspect]
     Indication: MYALGIA
     Dosage: 1 DF, QD
     Route: 048
     Dates: start: 20100801, end: 20110301
  2. LOTREL [Concomitant]
  3. VITAMIN D [Concomitant]
  4. FORTEO [Concomitant]

REACTIONS (1)
  - BLOOD PRESSURE INCREASED [None]
